FAERS Safety Report 20512639 (Version 3)
Quarter: 2022Q2

REPORT INFORMATION
  Report Type: Spontaneous
  Country: US (occurrence: US)
  Receive Date: 20220224
  Receipt Date: 20220526
  Transmission Date: 20220720
  Serious: Yes (Hospitalization, Other)
  Sender: FDA-Public Use
  Company Number: US-GW PHARMA-202202USGW00761

PATIENT
  Age: 10 Year
  Sex: Male
  Weight: 25.397 kg

DRUGS (3)
  1. EPIDIOLEX [Suspect]
     Active Substance: CANNABIDIOL
     Indication: Lennox-Gastaut syndrome
     Dosage: 10.24 MG/KG/DAY, 130 MILLIGRAM, BID
     Route: 048
     Dates: start: 20220122
  2. EPIDIOLEX [Suspect]
     Active Substance: CANNABIDIOL
     Indication: Epilepsy
     Dosage: 1.3 MILLIGRAM, BID
     Route: 048
     Dates: start: 202202
  3. EPIDIOLEX [Suspect]
     Active Substance: CANNABIDIOL
     Dosage: 1.3 MILLIGRAM, BID
     Route: 048
     Dates: start: 20220216

REACTIONS (6)
  - Fall [Unknown]
  - Head injury [Unknown]
  - Hospitalisation [Unknown]
  - Seizure [Unknown]
  - Condition aggravated [Unknown]
  - Insomnia [Unknown]

NARRATIVE: CASE EVENT DATE: 20220201
